FAERS Safety Report 21656951 (Version 1)
Quarter: 2022Q4

REPORT INFORMATION
  Report Type: Spontaneous
  Country: US (occurrence: US)
  Receive Date: 20221129
  Receipt Date: 20221129
  Transmission Date: 20230113
  Serious: No
  Sender: FDA-Public Use
  Company Number: US-PFIZER INC-PV202200112594

PATIENT
  Age: 86 Year
  Sex: Male

DRUGS (1)
  1. CIBINQO [Suspect]
     Active Substance: ABROCITINIB
     Dosage: 100 MG, DAILY(TAKE 1 TABLET BY MOUTH DAILY AS DIRECTED)
     Route: 048

REACTIONS (2)
  - Abdominal discomfort [Unknown]
  - Malaise [Unknown]
